FAERS Safety Report 6713308-1 (Version None)
Quarter: 2010Q2

REPORT INFORMATION
  Report Type: 
  Country: None (occurrence: None)
  Receive Date: 20100506
  Receipt Date: 20100421
  Transmission Date: 20101027
  Serious: Yes (Death, Hospitalization, Other)
  Sender: FDA-Public Use
  Company Number: US-ROCHE-690990

PATIENT
  Sex: Male

DRUGS (3)
  1. VALGANCICLOVIR HCL [Suspect]
     Indication: CYTOMEGALOVIRUS INFECTION
     Route: 065
     Dates: start: 20100101
  2. CAMPATH [Concomitant]
  3. RITUXAN [Concomitant]

REACTIONS (5)
  - BONE MARROW DISORDER [None]
  - CYTOMEGALOVIRUS INFECTION [None]
  - NEUTROPENIC SEPSIS [None]
  - ONCOLOGIC COMPLICATION [None]
  - PLATELET COUNT DECREASED [None]
